FAERS Safety Report 22377677 (Version 1)
Quarter: 2023Q2

REPORT INFORMATION
  Report Type: Spontaneous
  Country: ES (occurrence: ES)
  Receive Date: 20230529
  Receipt Date: 20230529
  Transmission Date: 20230722
  Serious: Yes (Other)
  Sender: FDA-Public Use
  Company Number: ES-AEMPS-1370062

PATIENT
  Sex: Female

DRUGS (2)
  1. ENALAPRIL [Interacting]
     Active Substance: ENALAPRIL
     Indication: Product used for unknown indication
     Dosage: UNK
     Route: 048
     Dates: start: 20230105, end: 20230105
  2. NIFEDIPINE [Interacting]
     Active Substance: NIFEDIPINE
     Dosage: UNK
     Route: 048
     Dates: start: 20230105, end: 20230105

REACTIONS (2)
  - Hypotension [Unknown]
  - Product administration error [Unknown]

NARRATIVE: CASE EVENT DATE: 20230105
